FAERS Safety Report 16007548 (Version 2)
Quarter: 2020Q4

REPORT INFORMATION
  Report Type: Report from Study
  Country: CA (occurrence: CA)
  Receive Date: 20190226
  Receipt Date: 20201228
  Transmission Date: 20210113
  Serious: Yes (Death, Other)
  Sender: FDA-Public Use
  Company Number: CA-JNJFOC-20170508893

PATIENT
  Age: 85 Year
  Sex: Male
  Weight: 78.5 kg

DRUGS (14)
  1. IMODIUM [Suspect]
     Active Substance: LOPERAMIDE HYDROCHLORIDE
     Indication: DIARRHOEA
     Route: 065
  2. RAPAFLO [Concomitant]
     Active Substance: SILODOSIN
     Route: 048
  3. SYNTHROID [Concomitant]
     Active Substance: LEVOTHYROXINE SODIUM
     Route: 048
  4. VALSARTAN. [Concomitant]
     Active Substance: VALSARTAN
     Route: 048
  5. LUMIGAN [Concomitant]
     Active Substance: BIMATOPROST
     Route: 047
  6. RISPERIDONE. [Concomitant]
     Active Substance: RISPERIDONE
     Route: 048
  7. REMICADE [Suspect]
     Active Substance: INFLIXIMAB
     Indication: COLITIS ULCERATIVE
     Route: 042
     Dates: start: 20170508
  8. REMICADE [Suspect]
     Active Substance: INFLIXIMAB
     Route: 042
     Dates: start: 20171218, end: 20190218
  9. AVODART [Concomitant]
     Active Substance: DUTASTERIDE
     Route: 048
  10. REMICADE [Suspect]
     Active Substance: INFLIXIMAB
     Indication: CROHN^S DISEASE
     Route: 042
     Dates: start: 20120801
  11. CALCIUM D-500 [Concomitant]
     Route: 048
  12. VITAMIN B12 [Concomitant]
     Active Substance: CYANOCOBALAMIN
     Route: 048
  13. PANTOPRAZOLE [Concomitant]
     Active Substance: PANTOPRAZOLE
     Route: 048
  14. NOVO-GESIC [Concomitant]
     Active Substance: ACETAMINOPHEN
     Route: 048

REACTIONS (7)
  - Respiratory tract infection [Fatal]
  - Skin irritation [Recovered/Resolved]
  - Palliative care [Unknown]
  - General physical health deterioration [Unknown]
  - Diarrhoea [Recovered/Resolved]
  - Constipation [Unknown]
  - Cognitive disorder [Unknown]

NARRATIVE: CASE EVENT DATE: 201712
